FAERS Safety Report 8207892-9 (Version None)
Quarter: 2012Q1

REPORT INFORMATION
  Report Type: 
  Country: None (occurrence: None)
  Receive Date: 20120314
  Receipt Date: 20120308
  Transmission Date: 20120608
  Serious: Yes (Hospitalization, Other)
  Sender: FDA-Public Use
  Company Number: DE-SANOFI-AVENTIS-2012SA016235

PATIENT
  Sex: Male
  Weight: 75 kg

DRUGS (9)
  1. ELIGARD [Suspect]
     Route: 065
     Dates: start: 20110412
  2. ELIGARD [Suspect]
     Route: 065
     Dates: start: 20110719
  3. TORSEMIDE [Concomitant]
     Dosage: DOSE: 10
  4. ELIGARD [Suspect]
     Route: 065
     Dates: start: 20111011
  5. HYDROCHLOROTHIAZIDE [Concomitant]
     Dosage: DOSE: 145
  6. ENALAPRIL MALEATE [Concomitant]
     Dosage: DOSE: 10
  7. DIGITOXIN TAB [Concomitant]
  8. MARCUMAR [Concomitant]
     Dosage: FOR STATE AFTER 2 X CARCINOMA
  9. CARVEDILOL [Concomitant]
     Indication: HYPERTENSION
     Dosage: DOSE: 25

REACTIONS (7)
  - SYMPHYSIOLYSIS [None]
  - INFECTION [None]
  - ANASTOMOTIC COMPLICATION [None]
  - ABSCESS [None]
  - PAIN [None]
  - CATHETER PLACEMENT [None]
  - HAEMORRHAGE [None]
